FAERS Safety Report 22024026 (Version 3)
Quarter: 2023Q2

REPORT INFORMATION
  Report Type: Spontaneous
  Country: US (occurrence: US)
  Receive Date: 20230223
  Receipt Date: 20230407
  Transmission Date: 20230722
  Serious: Yes (Hospitalization, Other)
  Sender: FDA-Public Use
  Company Number: US-MLMSERVICE-20230209-4094318-2

PATIENT
  Age: 1 Year
  Sex: Male

DRUGS (2)
  1. TRIAMCINOLONE [Suspect]
     Active Substance: TRIAMCINOLONE
     Indication: Oesophageal stenosis
     Dosage: UNK, EVERY 2 WEEK(FOR 3 OCCURRENCES)
     Route: 065
  2. LANSOPRAZOLE [Concomitant]
     Active Substance: LANSOPRAZOLE
     Indication: Product used for unknown indication
     Dosage: UNK, ONCE A DAY
     Route: 065

REACTIONS (5)
  - Sepsis [Unknown]
  - Pleural effusion [Unknown]
  - Oesophageal perforation [Unknown]
  - Mediastinal abscess [Unknown]
  - Staphylococcal infection [Unknown]
